FAERS Safety Report 10045049 (Version 1)
Quarter: 2014Q1

REPORT INFORMATION
  Report Type: Spontaneous
  Country: US (occurrence: US)
  Receive Date: 20140328
  Receipt Date: 20140328
  Transmission Date: 20141002
  Serious: Yes (Hospitalization, Other)
  Sender: FDA-Public Use
  Company Number: US-ELI_LILLY_AND_COMPANY-US201403007532

PATIENT
  Age: 30 Year
  Sex: Female
  Weight: 75.74 kg

DRUGS (1)
  1. HUMALOG LISPRO [Suspect]
     Indication: PRODUCT USED FOR UNKNOWN INDICATION
     Route: 058

REACTIONS (8)
  - Blood glucose increased [Unknown]
  - Diabetic ketoacidosis [Unknown]
  - Blood glucose increased [Unknown]
  - Thirst [Unknown]
  - Malaise [Unknown]
  - Malaise [Unknown]
  - Blood glucose increased [Unknown]
  - Impaired gastric emptying [Unknown]
